FAERS Safety Report 8455291-7 (Version None)
Quarter: 2012Q2

REPORT INFORMATION
  Report Type: 
  Country: None (occurrence: None)
  Receive Date: 20120621
  Receipt Date: 20120614
  Transmission Date: 20120825
  Serious: Yes (Other)
  Sender: FDA-Public Use
  Company Number: DE-ROXANE LABORATORIES, INC.-2012-RO-01421RO

PATIENT
  Age: 25 Year
  Sex: Female

DRUGS (6)
  1. CITALOPRAM HYDROBROMIDE [Suspect]
     Indication: DEPRESSION
  2. OPIPRAMOL [Suspect]
     Indication: DEPRESSION
  3. METHYLPREDNISOLONE [Suspect]
     Indication: OPTIC NEURITIS
     Dosage: 1 G
     Route: 042
  4. METHYLPREDNISOLONE [Suspect]
     Route: 048
  5. ZOLPIDEM [Suspect]
     Indication: SLEEP DISORDER
     Dosage: 5 MG
  6. MIRTAZAPINE [Suspect]

REACTIONS (7)
  - OPTIC NEURITIS [None]
  - SCOTOMA [None]
  - BLOOD GLUCOSE INCREASED [None]
  - OEDEMA PERIPHERAL [None]
  - GALACTORRHOEA [None]
  - SLEEP DISORDER [None]
  - MYDRIASIS [None]
